FAERS Safety Report 8906101 (Version 1)
Quarter: 2012Q4

REPORT INFORMATION
  Report Type: Spontaneous
  Country: US (occurrence: None)
  Receive Date: 20121106
  Receipt Date: 20121106
  Transmission Date: 20130627
  Serious: Yes (Other)
  Sender: FDA-Public Use
  Company Number: 2012-2919

PATIENT
  Age: 16 Year
  Sex: Female
  Weight: 55.79 kg

DRUGS (5)
  1. INCRELEX [Suspect]
     Indication: GROWTH HORMONE DEFICIENCY
     Dosage: (0.12 mg/kg, 2 in 1 D)
     Route: 058
  2. INCRELEX [Suspect]
     Indication: DRUG USE FOR UNAPPROVED INDICATION
     Dosage: (0.12 mg/kg, 2 in 1 D)
     Route: 058
  3. LEVOCARNITINE (LEVOCARNITINE) [Concomitant]
  4. COQ10 (UBIDECARENONE) [Concomitant]
  5. ASPIRIN (ACETYLSALICYLIC ACID) [Concomitant]

REACTIONS (4)
  - Hypoglycaemia [None]
  - Feeling abnormal [None]
  - Staring [None]
  - Unresponsive to stimuli [None]
